FAERS Safety Report 25595016 (Version 1)
Quarter: 2025Q3

REPORT INFORMATION
  Report Type: Report from Study
  Country: US (occurrence: US)
  Receive Date: 20250723
  Receipt Date: 20250723
  Transmission Date: 20251020
  Serious: Yes (Other)
  Sender: TAKEDA
  Company Number: US-TAKEDA-2025TUS042124

PATIENT
  Sex: Female

DRUGS (5)
  1. VEDOLIZUMAB [Suspect]
     Active Substance: VEDOLIZUMAB
     Indication: Colitis ulcerative
     Dosage: 108 MILLIGRAM, Q2WEEKS
     Dates: start: 20250307
  2. VEDOLIZUMAB [Suspect]
     Active Substance: VEDOLIZUMAB
  3. NORVASC [Concomitant]
     Active Substance: AMLODIPINE BESYLATE
  4. FASENRA [Concomitant]
     Active Substance: BENRALIZUMAB
  5. AMIKACIN [Concomitant]
     Active Substance: AMIKACIN

REACTIONS (2)
  - Colitis ulcerative [Unknown]
  - Impaired quality of life [Unknown]
